FAERS Safety Report 7044372-0 (Version None)
Quarter: 2010Q4

REPORT INFORMATION
  Report Type: 
  Country: None (occurrence: None)
  Receive Date: 20101014
  Receipt Date: 20101005
  Transmission Date: 20110411
  Serious: Yes (Other)
  Sender: FDA-Public Use
  Company Number: CA-BAYER-201036212NA

PATIENT
  Age: 35 Year
  Sex: Female

DRUGS (1)
  1. YAZ [Suspect]
     Indication: PRODUCT USED FOR UNKNOWN INDICATION
     Route: 048
     Dates: start: 20100922, end: 20100929

REACTIONS (3)
  - CHEST DISCOMFORT [None]
  - HYPERHIDROSIS [None]
  - HYPOAESTHESIA [None]
